FAERS Safety Report 19633643 (Version 1)
Quarter: 2021Q3

REPORT INFORMATION
  Report Type: Report from Study
  Country: None (occurrence: US)
  Receive Date: 20210730
  Receipt Date: 20210730
  Transmission Date: 20211014
  Serious: Yes (Death)
  Sender: FDA-Public Use
  Company Number: US-ABBVIE-21K-163-4015765-00

PATIENT
  Age: 84 Year
  Sex: Female

DRUGS (1)
  1. VENCLEXTA [Suspect]
     Active Substance: VENETOCLAX
     Indication: BREAST CANCER FEMALE
     Route: 048
     Dates: start: 20210415, end: 20210718

REACTIONS (1)
  - Death [Fatal]

NARRATIVE: CASE EVENT DATE: 20210718
